FAERS Safety Report 6822703-1 (Version None)
Quarter: 2010Q3

REPORT INFORMATION
  Report Type: 
  Country: None (occurrence: None)
  Receive Date: 20100708
  Receipt Date: 20100630
  Transmission Date: 20110219
  Serious: Yes (Other)
  Sender: FDA-Public Use
  Company Number: JP-PFIZER INC-2010081309

PATIENT
  Age: 52 Year
  Sex: Male

DRUGS (4)
  1. VFEND [Suspect]
     Indication: FEBRILE NEUTROPENIA
     Dosage: 300 MG, 2X/DAY
     Route: 042
  2. VFEND [Suspect]
     Dosage: 200 MG, 2X/DAY
     Route: 042
  3. AMIKACIN SULFATE [Concomitant]
     Indication: FEBRILE NEUTROPENIA
     Dosage: UNK
  4. MEROPEN [Concomitant]
     Indication: FEBRILE NEUTROPENIA
     Dosage: UNK

REACTIONS (1)
  - INAPPROPRIATE ANTIDIURETIC HORMONE SECRETION [None]
